FAERS Safety Report 12747858 (Version 1)
Quarter: 2016Q3

REPORT INFORMATION
  Report Type: Spontaneous
  Country: US (occurrence: US)
  Receive Date: 20160915
  Receipt Date: 20160915
  Transmission Date: 20161109
  Serious: No
  Sender: FDA-Public Use
  Company Number: US-JAZZ-2016-US-009992

PATIENT
  Sex: Female

DRUGS (33)
  1. PROTONIX DR [Concomitant]
  2. VITAMIN D3 [Concomitant]
     Active Substance: CHOLECALCIFEROL
  3. NUCYNTA [Concomitant]
     Active Substance: TAPENTADOL HYDROCHLORIDE
  4. AMITIZA [Concomitant]
     Active Substance: LUBIPROSTONE
  5. LYRICA [Concomitant]
     Active Substance: PREGABALIN
  6. VIT B COMPLEX [Concomitant]
  7. VITAMIN E [Concomitant]
     Active Substance: .ALPHA.-TOCOPHEROL
  8. XYREM [Suspect]
     Active Substance: SODIUM OXYBATE
     Dosage: 4.5 G, BID
     Route: 048
     Dates: start: 200704
  9. IBUPROFEN. [Concomitant]
     Active Substance: IBUPROFEN
  10. MAGNESIUM [Concomitant]
     Active Substance: MAGNESIUM
  11. CONCERTA [Concomitant]
     Active Substance: METHYLPHENIDATE HYDROCHLORIDE
  12. HYDROCHLOROTHIAZIDE. [Concomitant]
     Active Substance: HYDROCHLOROTHIAZIDE
  13. GABAPENTIN. [Concomitant]
     Active Substance: GABAPENTIN
  14. MACROBID [Concomitant]
     Active Substance: NITROFURANTOIN\NITROFURANTOIN MONOHYDRATE
  15. PERCOCET [Concomitant]
     Active Substance: ACETAMINOPHEN\OXYCODONE HYDROCHLORIDE
  16. PROVIGIL [Concomitant]
     Active Substance: MODAFINIL
  17. XYREM [Suspect]
     Active Substance: SODIUM OXYBATE
     Indication: NARCOLEPSY
     Dosage: 3 G, BID
     Route: 048
     Dates: start: 200704, end: 200704
  18. LISINOPRIL. [Concomitant]
     Active Substance: LISINOPRIL
  19. FLEXERIL [Concomitant]
     Active Substance: CYCLOBENZAPRINE HYDROCHLORIDE
  20. BUTRANS [Concomitant]
     Active Substance: BUPRENORPHINE
  21. HYDROCORTISONE. [Concomitant]
     Active Substance: HYDROCORTISONE
  22. POTASSIUM GLUCONATE [Concomitant]
     Active Substance: POTASSIUM GLUCONATE
  23. DHEA [Concomitant]
     Active Substance: PRASTERONE
  24. FOLIC ACID. [Concomitant]
     Active Substance: FOLIC ACID
  25. CYTOMEL [Concomitant]
     Active Substance: LIOTHYRONINE SODIUM
  26. AMITRIPTYLINE HCL [Concomitant]
     Active Substance: AMITRIPTYLINE
  27. RITALIN LA [Concomitant]
     Active Substance: METHYLPHENIDATE HYDROCHLORIDE
  28. SYNTHROID [Concomitant]
     Active Substance: LEVOTHYROXINE SODIUM
  29. TRAMADOL HCL [Concomitant]
     Active Substance: TRAMADOL HYDROCHLORIDE
  30. NORCO [Concomitant]
     Active Substance: ACETAMINOPHEN\HYDROCODONE BITARTRATE
  31. CONCERTA [Concomitant]
     Active Substance: METHYLPHENIDATE HYDROCHLORIDE
  32. METHYLPHENIDATE. [Concomitant]
     Active Substance: METHYLPHENIDATE
  33. XANAX [Concomitant]
     Active Substance: ALPRAZOLAM

REACTIONS (1)
  - Gastrooesophageal reflux disease [Not Recovered/Not Resolved]
